FAERS Safety Report 18964569 (Version 1)
Quarter: 2021Q1

REPORT INFORMATION
  Report Type: Spontaneous
  Country: US (occurrence: US)
  Receive Date: 20210303
  Receipt Date: 20210303
  Transmission Date: 20210420
  Serious: No
  Sender: FDA-Public Use
  Company Number: US-PFIZER INC-2019137476

PATIENT
  Age: 67 Year

DRUGS (1)
  1. DETROL LA [Suspect]
     Active Substance: TOLTERODINE TARTRATE
     Dosage: 4 MG, 2X/DAY(1 CAPULSE BID FOR 90 DAYS)
     Route: 048

REACTIONS (2)
  - Off label use [Unknown]
  - COVID-19 [Recovering/Resolving]
